FAERS Safety Report 7578134-2 (Version None)
Quarter: 2011Q2

REPORT INFORMATION
  Report Type: 
  Country: None (occurrence: None)
  Receive Date: 20110628
  Receipt Date: 20110607
  Transmission Date: 20111010
  Serious: Yes (Hospitalization)
  Sender: FDA-Public Use
  Company Number: A0870719A

PATIENT
  Age: 52 Year
  Sex: Male
  Weight: 104.5 kg

DRUGS (9)
  1. ZESTRIL [Concomitant]
  2. GLUCOPHAGE [Concomitant]
  3. AVANDIA [Suspect]
     Dosage: 8MG PER DAY
     Route: 048
     Dates: start: 19990101
  4. ELAVIL [Concomitant]
  5. LIPITOR [Concomitant]
  6. VIAGRA [Concomitant]
  7. GLUCOTROL XL [Concomitant]
  8. HYDROCODONE BITARTRATE AND ACETAMINOPHEN [Concomitant]
  9. TRICOR [Concomitant]

REACTIONS (1)
  - CEREBROVASCULAR ACCIDENT [None]
